FAERS Safety Report 5498981-0 (Version None)
Quarter: 2007Q4

REPORT INFORMATION
  Report Type: 
  Country: None (occurrence: None)
  Receive Date: 20071026
  Receipt Date: 20070511
  Transmission Date: 20080405
  Serious: No
  Sender: FDA-Public Use
  Company Number: A0651032A

PATIENT
  Age: 51 Year
  Sex: Male

DRUGS (27)
  1. ADVAIR DISKUS 100/50 [Suspect]
     Indication: ASTHMA
     Route: 055
     Dates: start: 20010101
  2. FLOVENT [Suspect]
     Indication: ASTHMA
     Route: 055
  3. AMYTAL [Concomitant]
  4. AMYTAL [Concomitant]
  5. ATROVENT [Concomitant]
  6. PROZAC [Concomitant]
  7. NASONEX [Concomitant]
  8. UNKNOWN MEDICATION [Concomitant]
  9. SINGULAIR [Concomitant]
  10. PROTONIX [Concomitant]
  11. ASA BABY [Concomitant]
  12. NABUMETONE [Concomitant]
  13. SPIRONOLACTONE [Concomitant]
  14. NEURONTIN [Concomitant]
  15. PRAVASTATIN SODIUM [Concomitant]
  16. HYZAAR [Concomitant]
  17. BENADRYL [Concomitant]
  18. ZYRTEC [Concomitant]
  19. AMARYL [Concomitant]
  20. AMBIEN [Concomitant]
  21. HYDROCODONE [Concomitant]
  22. FLEXERIL [Concomitant]
  23. REQUIP [Concomitant]
  24. UNKNOWN MEDICATION [Concomitant]
  25. PHENERGAN HCL [Concomitant]
  26. UNKNOWN MEDICATION [Concomitant]
  27. DOXYCYCLINE [Concomitant]

REACTIONS (2)
  - MOTOR DYSFUNCTION [None]
  - TREMOR [None]
